FAERS Safety Report 9252806 (Version 1)
Quarter: 2013Q2

REPORT INFORMATION
  Report Type: Spontaneous
  Country: US (occurrence: US)
  Receive Date: 20130424
  Receipt Date: 20130424
  Transmission Date: 20140414
  Serious: No
  Sender: FDA-Public Use
  Company Number: US-BAUSCH-BL-2013-000181

PATIENT
  Age: 63 Year
  Sex: Female

DRUGS (2)
  1. LOTEMAX (LOTEPREDNOL ETABONATE OPHTHALMIC SUSPENSION 0.5%) [Suspect]
     Indication: EYE INFLAMMATION
     Dosage: 1 DROP IN EACH EYE, FOUR TIMES PER DAY
     Route: 047
     Dates: start: 20130109, end: 20130110
  2. PROPYLENE GLYCOL/MACROGOL [Concomitant]

REACTIONS (1)
  - Nausea [Recovered/Resolved]
